FAERS Safety Report 9791329 (Version 2)
Quarter: 2014Q1

REPORT INFORMATION
  Report Type: Spontaneous
  Country: US (occurrence: US)
  Receive Date: 20140101
  Receipt Date: 20140122
  Transmission Date: 20141002
  Serious: Yes (Other)
  Sender: FDA-Public Use
  Company Number: US-AMGEN-USASP2013091076

PATIENT
  Age: 60 Year
  Sex: Female

DRUGS (1)
  1. ENBREL [Suspect]
     Indication: PSORIASIS
     Dosage: 50 MG, QWK
     Route: 058
     Dates: start: 20040802

REACTIONS (4)
  - Diabetes mellitus [Recovered/Resolved]
  - Pruritus generalised [Recovered/Resolved]
  - Formication [Recovered/Resolved]
  - Vulvovaginal mycotic infection [Recovered/Resolved]
